FAERS Safety Report 5021337-1 (Version None)
Quarter: 2006Q2

REPORT INFORMATION
  Report Type: 
  Country: None (occurrence: None)
  Receive Date: 20060608
  Receipt Date: 20050810
  Transmission Date: 20061013
  Serious: No
  Sender: FDA-Public Use
  Company Number: US-BRISTOL-MYERS SQUIBB COMPANY-13082763

PATIENT
  Age: 70 Year
  Sex: Female

DRUGS (2)
  1. SINEMET [Suspect]
     Indication: PARKINSON'S DISEASE
     Route: 048
     Dates: start: 20050501
  2. ARTANE [Concomitant]

REACTIONS (2)
  - DELUSION [None]
  - HALLUCINATION [None]
